FAERS Safety Report 8333466-5 (Version None)
Quarter: 2012Q1

REPORT INFORMATION
  Report Type: 
  Country: None (occurrence: None)
  Receive Date: 20120327
  Receipt Date: 20110408
  Transmission Date: 20120608
  Serious: Yes (Hospitalization)
  Sender: FDA-Public Use
  Company Number: PHHY2011US29926

PATIENT
  Age: 54 Year
  Sex: Female

DRUGS (12)
  1. ACETAMINOPHEN [Concomitant]
  2. REGLAN [Concomitant]
  3. LEVAQUIN [Concomitant]
  4. PROTONIX [Concomitant]
  5. LORTAB [Concomitant]
  6. AMBIEN [Concomitant]
  7. ZOFRAN [Concomitant]
  8. GLEEVEC [Suspect]
     Indication: CHROMOSOME ANALYSIS ABNORMAL
     Dosage: 400 MG, QD
     Dates: start: 20100819
  9. GLEEVEC [Suspect]
     Indication: CHRONIC MYELOID LEUKAEMIA
     Dosage: 400 MG, QD
     Dates: start: 20100819
  10. TENORMIN [Concomitant]
  11. DILAUDID [Concomitant]
  12. LOVENOX [Concomitant]

REACTIONS (9)
  - DIARRHOEA [None]
  - DYSPNOEA [None]
  - HYPOACUSIS [None]
  - ARTHRALGIA [None]
  - INFLAMMATORY BOWEL DISEASE [None]
  - ABDOMINAL PAIN [None]
  - ILEITIS [None]
  - COUGH [None]
  - HYPERCOAGULATION [None]
